FAERS Safety Report 7270319-8 (Version None)
Quarter: 2011Q1

REPORT INFORMATION
  Report Type: 
  Country: None (occurrence: None)
  Receive Date: 20110202
  Receipt Date: 20101227
  Transmission Date: 20110831
  Serious: Yes (Other)
  Sender: FDA-Public Use
  Company Number: US-BAYER-201026675NA

PATIENT
  Sex: Female

DRUGS (1)
  1. YASMIN [Suspect]
     Indication: ORAL CONTRACEPTION
     Route: 048
     Dates: start: 20020604, end: 20040801

REACTIONS (7)
  - THALAMIC INFARCTION [None]
  - TONGUE DISORDER [None]
  - CEREBROVASCULAR DISORDER [None]
  - MEMORY IMPAIRMENT [None]
  - DEPRESSION [None]
  - AMNESIA [None]
  - DYSGRAPHIA [None]
